FAERS Safety Report 4866924-6 (Version None)
Quarter: 2005Q4

REPORT INFORMATION
  Report Type: 
  Country: None (occurrence: None)
  Receive Date: 20051222
  Receipt Date: 20051213
  Transmission Date: 20060501
  Serious: Yes (Hospitalization, Other)
  Sender: FDA-Public Use
  Company Number: 2005165082

PATIENT
  Age: 53 Year
  Sex: Male

DRUGS (4)
  1. NORVASC [Suspect]
     Indication: HYPERTENSION
     Dosage: 5 MG (DAILY) ORAL
     Route: 048
     Dates: start: 20041201, end: 20051101
  2. ASPIRIN [Suspect]
     Indication: ANGINA PECTORIS
     Dosage: 100 MG (100 MG 1 IN 1D) ORAL
     Route: 048
     Dates: start: 20021129
  3. COVERSYL (PERINDOPRIL) [Suspect]
     Indication: HYPERTENSION
     Dosage: 4 MG (4 MG 1 IN 1 D) ORAL
     Route: 048
     Dates: start: 19950101, end: 20051121
  4. CARVEDILOL [Suspect]
     Indication: HYPERTENSION
     Dosage: 10 MG (10 MG 1 IN 1D ORAL)
     Route: 048
     Dates: start: 19950101, end: 20051121

REACTIONS (15)
  - ANGINA PECTORIS [None]
  - AORTIC DISSECTION [None]
  - BACK PAIN [None]
  - CHEST PAIN [None]
  - CORONARY ARTERY STENOSIS [None]
  - EOSINOPHILIA [None]
  - HYPEREOSINOPHILIC SYNDROME [None]
  - HYPERTROPHY [None]
  - OESOPHAGEAL DISORDER [None]
  - OESOPHAGITIS [None]
  - PANCREATITIS [None]
  - PERIPHERAL VASCULAR DISORDER [None]
  - PERITONEAL DISORDER [None]
  - PLEURAL EFFUSION [None]
  - THERAPY NON-RESPONDER [None]
